FAERS Safety Report 9550299 (Version 1)
Quarter: 2013Q3

REPORT INFORMATION
  Report Type: Spontaneous
  Country: US (occurrence: US)
  Receive Date: 20130924
  Receipt Date: 20130924
  Transmission Date: 20140515
  Serious: No
  Sender: FDA-Public Use
  Company Number: US-SANOFI-AVENTIS-2013SA072289

PATIENT
  Age: 59 Year
  Sex: Female
  Weight: 53.97 kg

DRUGS (12)
  1. AUBAGIO [Suspect]
     Route: 048
  2. LYRICA [Concomitant]
     Route: 065
  3. ZONISAMIDE [Concomitant]
     Route: 065
  4. PROMETHAZINE [Concomitant]
     Route: 065
  5. PRILOSEC [Concomitant]
     Route: 065
  6. DILTIAZEM [Concomitant]
     Route: 065
  7. MECLIZINE [Concomitant]
     Route: 065
  8. CRESTOR [Concomitant]
     Route: 065
  9. ASPIRIN [Concomitant]
     Route: 065
  10. NITROLINGUAL [Concomitant]
     Route: 065
  11. PLAVIX [Concomitant]
     Route: 065
  12. ANTIHYPERTENSIVES [Concomitant]
     Dosage: DOSE 40-12.5
     Route: 065

REACTIONS (1)
  - Alopecia [Unknown]
